FAERS Safety Report 11124919 (Version 4)
Quarter: 2015Q2

REPORT INFORMATION
  Report Type: Spontaneous
  Country: JP (occurrence: JP)
  Receive Date: 20150520
  Receipt Date: 20150602
  Transmission Date: 20150821
  Serious: Yes (Life-Threatening, Other)
  Sender: FDA-Public Use
  Company Number: JP-PFIZER INC-2015168011

PATIENT
  Age: 91 Year
  Sex: Male
  Weight: 50 kg

DRUGS (8)
  1. ZOSYN [Suspect]
     Active Substance: PIPERACILLIN SODIUM\TAZOBACTAM SODIUM
     Indication: PNEUMONIA BACTERIAL
     Dosage: 4.5 G, 3X/DAY
     Route: 042
     Dates: start: 20150419, end: 20150427
  2. DOPASTON [Concomitant]
     Active Substance: LEVODOPA
     Indication: PARKINSONISM
     Dosage: 50 MG, DAILY
     Route: 041
     Dates: start: 20140704
  3. OTSUKA MV [Concomitant]
     Dosage: 1 A, DAILY
     Route: 041
     Dates: start: 20140714
  4. ELEMENMIC [Concomitant]
     Active Substance: CUPRIC SULFATE\FERRIC CHLORIDE\MANGANESE CHLORIDE\POTASSIUM IODIDE\ZINC SULFATE
     Dosage: 2 ML, DAILY
     Route: 041
     Dates: start: 20140714
  5. OMEPRAL [Concomitant]
     Active Substance: OMEPRAZOLE
     Indication: GASTROOESOPHAGEAL REFLUX DISEASE
     Dosage: 20 MG, DAILY
     Route: 041
     Dates: start: 20140704
  6. NEOPAREN [Concomitant]
     Active Substance: AMINO ACIDS\DEXTROSE\ELECTROLYTES NOS
     Indication: DYSPHAGIA
     Dosage: 2000 ML, DAILY
     Route: 041
     Dates: start: 20140714
  7. 10% SODIUM CHLORIDE [Concomitant]
     Active Substance: SODIUM CHLORIDE
     Dosage: 20 ML, DAILY
     Route: 041
     Dates: start: 20140714
  8. ISOTONIC SODIUM CHLORIDE SOLUTION [Concomitant]
     Active Substance: SODIUM CHLORIDE
     Dosage: 40 ML, DAILY
     Route: 041
     Dates: start: 20140704

REACTIONS (2)
  - Cardiac failure congestive [Recovered/Resolved]
  - Haemolytic anaemia [Recovered/Resolved]

NARRATIVE: CASE EVENT DATE: 20150426
